FAERS Safety Report 23935415 (Version 1)
Quarter: 2024Q2

REPORT INFORMATION
  Report Type: Spontaneous
  Country: US (occurrence: US)
  Receive Date: 20240604
  Receipt Date: 20240604
  Transmission Date: 20240716
  Serious: No
  Sender: FDA-Public Use
  Company Number: US-STERISCIENCE B.V.-2023-ST-001419

PATIENT
  Age: 35 Year
  Sex: Female

DRUGS (4)
  1. METOPROLOL [Suspect]
     Active Substance: METOPROLOL
     Indication: Ventricular arrhythmia
     Dosage: UNK
     Route: 042
  2. PROCAINAMIDE HYDROCHLORIDE [Suspect]
     Active Substance: PROCAINAMIDE HYDROCHLORIDE
     Indication: Ventricular arrhythmia
     Dosage: UNK
     Route: 042
  3. FLECAINIDE [Suspect]
     Active Substance: FLECAINIDE
     Indication: Ventricular arrhythmia
     Dosage: 150 UNK, BID. RECEIVED FLECAINIDE 150 TWICE DAILY
     Route: 065
  4. NADOLOL [Suspect]
     Active Substance: NADOLOL
     Indication: Ventricular arrhythmia
     Dosage: 120 UNK, QD, RECEIVED NADOLOL 120 DAILY
     Route: 065

REACTIONS (2)
  - Maternal exposure during pregnancy [Unknown]
  - Off label use [Unknown]
